FAERS Safety Report 8975973 (Version 2)
Quarter: 2013Q1

REPORT INFORMATION
  Report Type: Other
  Country: GB (occurrence: GB)
  Receive Date: 20121219
  Receipt Date: 20130212
  Transmission Date: 20140127
  Serious: Yes (Hospitalization)
  Sender: FDA-Public Use
  Company Number: GB-WATSON-2012-22173

PATIENT
  Age: 59 Year
  Sex: Female
  Weight: 52 kg

DRUGS (10)
  1. OMEPRAZOLE (UNKNOWN) [Suspect]
     Indication: PROPHYLAXIS
     Dosage: 20 MG, DAILY
     Route: 048
  2. TELFAST [Suspect]
     Indication: PRURITUS GENERALISED
     Dosage: 120 MG, DAILY
     Route: 048
     Dates: start: 20121107
  3. FOLIC ACID [Concomitant]
     Indication: PRODUCT USED FOR UNKNOWN INDICATION
     Dosage: 5 MG, DAILY
     Route: 048
  4. ADCAL D3 [Concomitant]
     Indication: MINERAL SUPPLEMENTATION
     Dosage: 750 MG AND 5 MCG UNKNOWN
     Route: 048
  5. PREDNISOLONE [Concomitant]
     Indication: PRODUCT USED FOR UNKNOWN INDICATION
     Dosage: 5MG ONCE EVERY OTHER DAY
     Route: 048
  6. CROTAMITON [Concomitant]
     Indication: PRODUCT USED FOR UNKNOWN INDICATION
     Dosage: UNKNOWN
     Route: 061
  7. CANDESARTAN CILEXETIL [Concomitant]
     Indication: BLOOD PRESSURE
     Dosage: 32 MG, DAILY
     Route: 048
  8. DARBEPOETIN ALFA [Concomitant]
     Indication: MINERAL SUPPLEMENTATION
     Dosage: 40 MCG EVERY FORTNIGHT
     Route: 065
  9. DIPROBASE                          /01132701/ [Concomitant]
     Indication: PRODUCT USED FOR UNKNOWN INDICATION
     Dosage: TWICE A DAY
     Route: 061
  10. DOXAZOSIN MESILATE [Suspect]
     Indication: PRODUCT USED FOR UNKNOWN INDICATION
     Dosage: 2 MG, DAILY
     Route: 065

REACTIONS (4)
  - Paraesthesia [Not Recovered/Not Resolved]
  - Drug interaction [Unknown]
  - Pain [Unknown]
  - Muscular weakness [Not Recovered/Not Resolved]
